FAERS Safety Report 5901247-5 (Version None)
Quarter: 2008Q3

REPORT INFORMATION
  Report Type: 
  Country: None (occurrence: None)
  Receive Date: 20080929
  Receipt Date: 20080708
  Transmission Date: 20090109
  Serious: No
  Sender: FDA-Public Use
  Company Number: US-BRISTOL-MYERS SQUIBB COMPANY-14253504

PATIENT
  Age: 64 Year
  Sex: Female
  Weight: 49 kg

DRUGS (7)
  1. ORENCIA [Suspect]
     Indication: RHEUMATOID ARTHRITIS
     Dosage: 3RD INFUSION IN JUL 2008
  2. CELEBREX [Concomitant]
  3. FORTEO [Concomitant]
  4. LEUCOVORIN CALCIUM [Concomitant]
  5. LOVAZA [Concomitant]
  6. MULTI-VITAMIN [Concomitant]
  7. TYLENOL (CAPLET) [Concomitant]

REACTIONS (3)
  - BACK PAIN [None]
  - COUGH [None]
  - FATIGUE [None]
